FAERS Safety Report 9703969 (Version 1)
Quarter: 2013Q4

REPORT INFORMATION
  Report Type: Spontaneous
  Country: US (occurrence: None)
  Receive Date: 20131121
  Receipt Date: 20131121
  Transmission Date: 20140711
  Serious: Yes (Hospitalization)
  Sender: FDA-Public Use
  Company Number: None

PATIENT
  Age: 28 Year
  Sex: Female
  Weight: 65.8 kg

DRUGS (1)
  1. NUVARING [Suspect]
     Indication: MENSTRUATION IRREGULAR
     Dates: end: 20110913

REACTIONS (1)
  - Deep vein thrombosis [None]
